FAERS Safety Report 6664826-6 (Version None)
Quarter: 2010Q2

REPORT INFORMATION
  Report Type: 
  Country: None (occurrence: None)
  Receive Date: 20100402
  Receipt Date: 20100324
  Transmission Date: 20101027
  Serious: Yes (Hospitalization)
  Sender: FDA-Public Use
  Company Number: US-BIOGENIDEC-2009BI025209

PATIENT
  Age: 54 Year
  Sex: Female

DRUGS (2)
  1. AVONEX [Suspect]
     Indication: MULTIPLE SCLEROSIS
     Route: 030
     Dates: start: 20000705, end: 20070703
  2. AVONEX [Suspect]
     Route: 030
     Dates: start: 20090826

REACTIONS (5)
  - COLON CANCER STAGE IV [None]
  - FEELING COLD [None]
  - MUSCLE SPASTICITY [None]
  - NAUSEA [None]
  - WHITE BLOOD CELL COUNT DECREASED [None]
